FAERS Safety Report 21221250 (Version 5)
Quarter: 2022Q4

REPORT INFORMATION
  Report Type: Spontaneous
  Country: CA (occurrence: CA)
  Receive Date: 20220817
  Receipt Date: 20221008
  Transmission Date: 20230113
  Serious: Yes (Other)
  Sender: FDA-Public Use
  Company Number: CA-NOVARTISPH-NVSC2022CA185564

PATIENT
  Sex: Female

DRUGS (1)
  1. GLYCOPYRROLATE [Suspect]
     Active Substance: GLYCOPYRROLATE
     Indication: Chronic obstructive pulmonary disease
     Dosage: 1 DOSAGE FORM, QD
     Dates: start: 20220805

REACTIONS (10)
  - Glaucoma [Not Recovered/Not Resolved]
  - Conjunctival haemorrhage [Not Recovered/Not Resolved]
  - Ocular hypertension [Not Recovered/Not Resolved]
  - Eye pain [Not Recovered/Not Resolved]
  - Halo vision [Not Recovered/Not Resolved]
  - Abdominal pain upper [Recovered/Resolved]
  - Ocular discomfort [Recovered/Resolved]
  - Oropharyngeal pain [Unknown]
  - Dry mouth [Unknown]
  - Eye disorder [Unknown]
